FAERS Safety Report 15947440 (Version 3)
Quarter: 2021Q4

REPORT INFORMATION
  Report Type: Spontaneous
  Country: CO (occurrence: CO)
  Receive Date: 20190211
  Receipt Date: 20211104
  Transmission Date: 20220303
  Serious: Yes (Hospitalization)
  Sender: FDA-Public Use
  Company Number: CO-BIOMARINAP-CO-2019-121911

PATIENT
  Age: 11 Year
  Sex: Male
  Weight: 15 kg

DRUGS (1)
  1. VIMIZIM [Suspect]
     Active Substance: ELOSULFASE ALFA
     Indication: Mucopolysaccharidosis IV
     Dosage: 25 MILLIGRAM, QW
     Route: 042
     Dates: start: 20170420

REACTIONS (1)
  - Knee deformity [Unknown]

NARRATIVE: CASE EVENT DATE: 20190206
